FAERS Safety Report 18182869 (Version 1)
Quarter: 2020Q3

REPORT INFORMATION
  Report Type: Other
  Country: US (occurrence: US)
  Receive Date: 20200821
  Receipt Date: 20200821
  Transmission Date: 20201103
  Serious: Yes (Death, Hospitalization)
  Sender: FDA-Public Use
  Company Number: US-AMARIN PHARMA, INC.-2020AMR000542

PATIENT
  Age: 72 Year
  Sex: Male

DRUGS (1)
  1. VASCEPA [Suspect]
     Active Substance: ICOSAPENT ETHYL
     Indication: PRODUCT USED FOR UNKNOWN INDICATION
     Dates: start: 20191219

REACTIONS (3)
  - Clostridium difficile infection [Unknown]
  - Septic shock [Fatal]
  - Asthenia [Unknown]

NARRATIVE: CASE EVENT DATE: 20200721
